FAERS Safety Report 10186803 (Version 1)
Quarter: 2014Q2

REPORT INFORMATION
  Report Type: Spontaneous
  Country: BR (occurrence: BR)
  Receive Date: 20140521
  Receipt Date: 20140521
  Transmission Date: 20141212
  Serious: Yes (Other)
  Sender: FDA-Public Use
  Company Number: BR-PFIZER INC-2014135633

PATIENT
  Age: 66 Year
  Sex: Female
  Weight: 78 kg

DRUGS (3)
  1. XALATAN [Suspect]
     Indication: GLAUCOMA
     Dosage: ONE DROP IN EACH EYE, 1X/DAY
     Route: 047
     Dates: start: 20120515
  2. ALPHAGAN [Concomitant]
     Indication: INTRAOCULAR PRESSURE TEST ABNORMAL
     Dosage: UNK, 2X/DAY
     Dates: start: 2012
  3. LACRIFILM [Concomitant]
     Indication: EYE LUBRICATION THERAPY
     Dosage: UNK, 3X/DAY
     Dates: start: 2012

REACTIONS (2)
  - Femur fracture [Recovering/Resolving]
  - Fall [Recovered/Resolved]
